FAERS Safety Report 23681050 (Version 1)
Quarter: 2024Q1

REPORT INFORMATION
  Report Type: Spontaneous
  Country: US (occurrence: US)
  Receive Date: 20240328
  Receipt Date: 20240328
  Transmission Date: 20240410
  Serious: No
  Sender: FDA-Public Use
  Company Number: US-TEVA-VS-3159050

PATIENT
  Age: 40 Year
  Sex: Male

DRUGS (3)
  1. UZEDY [Suspect]
     Active Substance: RISPERIDONE
     Indication: Psychotic disorder
     Dosage: 100 MG/0.28 ML
     Route: 065
     Dates: start: 20231208
  2. LITHIUM [Concomitant]
     Active Substance: LITHIUM
  3. CARBONATE [Concomitant]

REACTIONS (1)
  - Off label use [Unknown]
